FAERS Safety Report 5044323-4 (Version None)
Quarter: 2006Q3

REPORT INFORMATION
  Report Type: 
  Country: None (occurrence: None)
  Receive Date: 20060706
  Receipt Date: 20060511
  Transmission Date: 20061208
  Serious: Yes (Hospitalization)
  Sender: FDA-Public Use
  Company Number: 2006PK01043

PATIENT
  Age: 26994 Day
  Sex: Female

DRUGS (2)
  1. ARIMIDEX [Suspect]
     Indication: BREAST CANCER
     Route: 048
     Dates: start: 20030201, end: 20051101
  2. ARIMIDEX [Suspect]
     Dosage: RANDOMIZING
     Route: 048
     Dates: start: 20051108

REACTIONS (1)
  - MACULAR DEGENERATION [None]
